FAERS Safety Report 10434154 (Version 2)
Quarter: 2014Q3

REPORT INFORMATION
  Report Type: Spontaneous
  Country: US (occurrence: US)
  Receive Date: 20140905
  Receipt Date: 20140919
  Transmission Date: 20150326
  Serious: No
  Sender: FDA-Public Use
  Company Number: US-PFIZER INC-2014243752

PATIENT
  Age: 67 Year
  Sex: Male

DRUGS (1)
  1. XALKORI [Suspect]
     Active Substance: CRIZOTINIB
     Indication: LUNG NEOPLASM MALIGNANT
     Dosage: 250 MG, 2X/DAY
     Route: 048
     Dates: start: 20140821

REACTIONS (6)
  - Eructation [Unknown]
  - Fatigue [Unknown]
  - Dyspepsia [Unknown]
  - Vomiting [Unknown]
  - Visual acuity reduced [Unknown]
  - Anxiety [Recovering/Resolving]
